FAERS Safety Report 8300391-5 (Version None)
Quarter: 2012Q2

REPORT INFORMATION
  Report Type: 
  Country: None (occurrence: None)
  Receive Date: 20120420
  Receipt Date: 20120410
  Transmission Date: 20120825
  Serious: Yes (Hospitalization)
  Sender: FDA-Public Use
  Company Number: ES-JNJFOC-20120304891

PATIENT
  Sex: Male
  Weight: 80 kg

DRUGS (3)
  1. RISPERIDONE [Concomitant]
     Indication: SCHIZOPHRENIA
     Route: 065
     Dates: start: 20120120, end: 20120228
  2. AKINETON [Concomitant]
     Indication: EXTRAPYRAMIDAL DISORDER
     Dates: start: 20120127
  3. PALIPERIDONE [Suspect]
     Indication: SCHIZOPHRENIA
     Route: 065
     Dates: start: 20120215

REACTIONS (1)
  - PSYCHOTIC DISORDER [None]
